FAERS Safety Report 6394340-7 (Version None)
Quarter: 2009Q4

REPORT INFORMATION
  Report Type: 
  Country: None (occurrence: None)
  Receive Date: 20091006
  Receipt Date: 20090930
  Transmission Date: 20100525
  Serious: Yes (Death)
  Sender: FDA-Public Use
  Company Number: 2009SP024338

PATIENT
  Age: 81 Year
  Sex: Male

DRUGS (21)
  1. NITRO-DUR [Suspect]
     Indication: CARDIAC FAILURE
     Dosage: 5 MG;TDER
     Route: 062
     Dates: start: 20090813
  2. NITRO-DUR [Suspect]
     Indication: PROPHYLAXIS
     Dosage: 5 MG;TDER
     Route: 062
     Dates: start: 20090813
  3. NITRO-DUR [Suspect]
     Indication: VENTRICULAR DYSFUNCTION
     Dosage: 5 MG;TDER
     Route: 062
     Dates: start: 20090813
  4. ADIRO [Concomitant]
  5. INSULIN [Concomitant]
  6. CARDURA [Concomitant]
  7. PENICILLIN [Concomitant]
  8. CARDYL [Concomitant]
  9. CLEXANE [Concomitant]
  10. SEGURIL /00032601/ [Concomitant]
  11. ALDACTONE [Concomitant]
  12. RENITEC  /00574901/ [Concomitant]
  13. HYDRAPRESS [Concomitant]
  14. URBASON  /00049601/ [Concomitant]
  15. OMEPRAZOLE [Concomitant]
  16. AMOXICILLIN AND CLAVULANATE POTASSIUM [Concomitant]
  17. FLUMIL /00082801/ [Concomitant]
  18. TERMALGIN [Concomitant]
  19. ATROVENT [Concomitant]
  20. ENEMA CASEN  /00129701/ [Concomitant]
  21. EMULIQUEN SIMPLE  /00887401/ [Concomitant]

REACTIONS (7)
  - CONDITION AGGRAVATED [None]
  - HEADACHE [None]
  - MOBILITY DECREASED [None]
  - PNEUMONIA [None]
  - RESPIRATORY FAILURE [None]
  - SUDDEN DEATH [None]
  - TACHYCARDIA [None]
